FAERS Safety Report 4628888-X (Version None)
Quarter: 2005Q1

REPORT INFORMATION
  Report Type: 
  Country: None (occurrence: None)
  Receive Date: 20050107
  Receipt Date: 20040914
  Transmission Date: 20050727
  Serious: No
  Sender: FDA-Public Use
  Company Number: 234325K04USA

PATIENT
  Age: 50 Year
  Sex: Female

DRUGS (5)
  1. REBIF [Suspect]
     Indication: MULTIPLE SCLEROSIS
     Dosage: 3 IN 1 WEEKS
     Dates: start: 20040811
  2. TOPAMAX [Suspect]
  3. QUETIAPINE [Concomitant]
  4. TOPIRAMATE [Concomitant]
  5. PARACETAMOL [Concomitant]

REACTIONS (7)
  - ARTHRALGIA [None]
  - CYSTITIS [None]
  - DYSPHONIA [None]
  - INSOMNIA [None]
  - NASAL SINUS DRAINAGE [None]
  - PYREXIA [None]
  - SINUSITIS [None]
